FAERS Safety Report 7453585-5 (Version None)
Quarter: 2011Q2

REPORT INFORMATION
  Report Type: 
  Country: None (occurrence: None)
  Receive Date: 20110502
  Receipt Date: 20110421
  Transmission Date: 20111010
  Serious: Yes (Other)
  Sender: FDA-Public Use
  Company Number: BE-ASTRAZENECA-2011SE23125

PATIENT
  Sex: Female
  Weight: 58 kg

DRUGS (5)
  1. MONTELUKAST [Concomitant]
     Dates: start: 20101001
  2. ORTAN [Concomitant]
     Dates: start: 20101001, end: 20110419
  3. METFORMAX [Concomitant]
     Dates: start: 20101001, end: 20110419
  4. SYMBICORT [Suspect]
     Indication: ASTHMA
     Dosage: 160 MCG, 2X2 PUFFS
     Route: 055
  5. ASAFLOW [Concomitant]
     Indication: ANTICOAGULANT THERAPY
     Dates: start: 20101001, end: 20110419

REACTIONS (8)
  - DYSPNOEA EXERTIONAL [None]
  - THROAT IRRITATION [None]
  - USE OF ACCESSORY RESPIRATORY MUSCLES [None]
  - BRONCHOSPASM [None]
  - CHEST DISCOMFORT [None]
  - WEIGHT DECREASED [None]
  - DYSPHONIA [None]
  - COUGH [None]
